FAERS Safety Report 7308011-3 (Version None)
Quarter: 2011Q1

REPORT INFORMATION
  Report Type: 
  Country: None (occurrence: None)
  Receive Date: 20110209
  Receipt Date: 20110124
  Transmission Date: 20110831
  Serious: Yes (Hospitalization)
  Sender: FDA-Public Use
  Company Number: 2011MA000602

PATIENT
  Age: 37 Year
  Sex: Female

DRUGS (10)
  1. DOXORUBICIN [Concomitant]
  2. PACLITAXEL [Concomitant]
  3. LETROZOLE [Concomitant]
  4. PACLITAXEL [Suspect]
     Indication: BREAST CANCER
     Dosage: ;IV
     Route: 042
  5. CYCLOPHOSPHAMIDE [Concomitant]
  6. TAMOXIPEN [Concomitant]
  7. CAPECITABINE [Concomitant]
  8. FLUOROURACIL [Concomitant]
  9. TRASTUZUMAB [Concomitant]
  10. METHOTREXATE [Concomitant]

REACTIONS (1)
  - MYELODYSPLASTIC SYNDROME [None]
